FAERS Safety Report 8229637-9 (Version None)
Quarter: 2012Q1

REPORT INFORMATION
  Report Type: 
  Country: None (occurrence: None)
  Receive Date: 20120322
  Receipt Date: 20120316
  Transmission Date: 20120608
  Serious: Yes (Other)
  Sender: FDA-Public Use
  Company Number: PHHY2012AR023906

PATIENT
  Sex: Female

DRUGS (1)
  1. RASILEZ D [Suspect]
     Indication: HYPERTENSION
     Dosage: 150/12.5 MG, DAILY

REACTIONS (2)
  - FALL [None]
  - BACK PAIN [None]
